FAERS Safety Report 9347969 (Version 1)
Quarter: 2013Q2

REPORT INFORMATION
  Report Type: Spontaneous
  Country: CN (occurrence: CN)
  Receive Date: 20130614
  Receipt Date: 20130614
  Transmission Date: 20140414
  Serious: Yes (Hospitalization)
  Sender: FDA-Public Use
  Company Number: CN-JNJFOC-20130606037

PATIENT
  Age: 8 Month
  Sex: Male

DRUGS (6)
  1. TYLENOL SUSPENSION LIQUID [Suspect]
     Indication: NASOPHARYNGITIS
     Route: 048
     Dates: start: 20121025, end: 20121027
  2. TYLENOL SUSPENSION LIQUID [Suspect]
     Indication: PYREXIA
     Route: 048
     Dates: start: 20121025, end: 20121027
  3. TRADITIONAL CHINESE MEDICATION [Concomitant]
     Indication: NASOPHARYNGITIS
     Route: 048
  4. TRADITIONAL CHINESE MEDICATION [Concomitant]
     Indication: PYREXIA
     Route: 048
  5. UNSPECIFIED ANTIVIRAL MEDICATION [Concomitant]
     Indication: NASOPHARYNGITIS
     Route: 048
  6. UNSPECIFIED ANTIVIRAL MEDICATION [Concomitant]
     Indication: PYREXIA
     Route: 048

REACTIONS (2)
  - Vomiting [Recovered/Resolved]
  - Hepatic enzyme increased [Recovered/Resolved]
